FAERS Safety Report 4995093-7 (Version None)
Quarter: 2006Q2

REPORT INFORMATION
  Report Type: 
  Country: None (occurrence: None)
  Receive Date: 20060503
  Receipt Date: 20060420
  Transmission Date: 20061013
  Serious: Yes (Death)
  Sender: FDA-Public Use
  Company Number: 2006053608

PATIENT
  Sex: Female

DRUGS (1)
  1. DETROL LA [Suspect]
     Indication: ILL-DEFINED DISORDER
     Dosage: 4 MG

REACTIONS (1)
  - NO ADVERSE EFFECT [None]
